FAERS Safety Report 6809002-9 (Version None)
Quarter: 2010Q2

REPORT INFORMATION
  Report Type: 
  Country: None (occurrence: None)
  Receive Date: 20100630
  Receipt Date: 20091117
  Transmission Date: 20101027
  Serious: No
  Sender: FDA-Public Use
  Company Number: US-PFIZER INC-2009277040

PATIENT
  Sex: Male
  Weight: 70.3 kg

DRUGS (3)
  1. VIAGRA [Suspect]
     Indication: ERECTILE DYSFUNCTION
     Dosage: 25 MG, AS NEEDED
     Route: 048
     Dates: start: 20020101
  2. ZOCOR [Concomitant]
     Indication: ARTERIAL OCCLUSIVE DISEASE
     Dosage: 20 MG, 1X/DAY
     Route: 048
     Dates: start: 19950101
  3. ACETYLSALICYLIC ACID [Concomitant]
     Dosage: UNK
     Dates: start: 19950101

REACTIONS (3)
  - ABDOMINAL INJURY [None]
  - ABDOMINAL PAIN UPPER [None]
  - CYANOPSIA [None]
